FAERS Safety Report 19761817 (Version 1)
Quarter: 2021Q3

REPORT INFORMATION
  Report Type: Spontaneous
  Country: GB (occurrence: GB)
  Receive Date: 20210829
  Receipt Date: 20210829
  Transmission Date: 20211014
  Serious: No
  Sender: FDA-Public Use
  Company Number: None

PATIENT
  Age: 26 Year
  Sex: Female
  Weight: 65 kg

DRUGS (8)
  1. ZINC. [Concomitant]
     Active Substance: ZINC
  2. MULTIVITAMIN [Concomitant]
     Active Substance: VITAMINS
  3. VENTOLIN [Concomitant]
     Active Substance: ALBUTEROL SULFATE
  4. VITAMIN D [Concomitant]
     Active Substance: VITAMIN D NOS
  5. CLOBETASONE 0.05 [Suspect]
     Active Substance: CLOBETASONE
     Indication: ECZEMA
  6. BETAMETHASONE VALERATE 0.1% [Suspect]
     Active Substance: BETAMETHASONE VALERATE
     Indication: ECZEMA
     Dates: start: 20200801, end: 20210330
  7. VITAMIN C [Concomitant]
     Active Substance: ASCORBIC ACID
  8. TAURINE [Concomitant]
     Active Substance: TAURINE

REACTIONS (2)
  - Eczema [None]
  - Steroid withdrawal syndrome [None]

NARRATIVE: CASE EVENT DATE: 20210330
